FAERS Safety Report 15406850 (Version 3)
Quarter: 2018Q4

REPORT INFORMATION
  Report Type: Spontaneous
  Country: ZA (occurrence: ZA)
  Receive Date: 20180920
  Receipt Date: 20181130
  Transmission Date: 20190204
  Serious: Yes (Hospitalization)
  Sender: FDA-Public Use
  Company Number: ZA-NOVOPROD-620200

PATIENT
  Age: 81 Year
  Sex: Female

DRUGS (9)
  1. VECTORYL [Concomitant]
     Active Substance: PERINDOPRIL ERBUMINE
     Dosage: UNK
     Route: 065
  2. ELTROXIN [Concomitant]
     Active Substance: LEVOTHYROXINE
     Dosage: UNK
     Route: 065
  3. CLOPIDOGREL [Concomitant]
     Active Substance: CLOPIDOGREL BISULFATE
     Dosage: UNK
     Route: 065
  4. ESTRADOT [Concomitant]
     Active Substance: ESTRADIOL
     Dosage: UNK
     Route: 065
  5. ECOTRIN [Concomitant]
     Active Substance: ASPIRIN
     Dosage: UNK
     Route: 065
  6. CARDICOR [Concomitant]
     Active Substance: BISOPROLOL
     Dosage: UNK
     Route: 065
  7. TESAR [Concomitant]
     Active Substance: TELMISARTAN
     Dosage: UNK
     Route: 065
  8. VAGIFEM [Suspect]
     Active Substance: ESTRADIOL
     Indication: HORMONE REPLACEMENT THERAPY
     Dosage: 10 ?G, BIW
     Route: 067
  9. INDAPAMIDE. [Concomitant]
     Active Substance: INDAPAMIDE
     Dosage: UNK
     Route: 065

REACTIONS (1)
  - Bladder cancer recurrent [Recovering/Resolving]
